FAERS Safety Report 26064799 (Version 1)
Quarter: 2025Q4

REPORT INFORMATION
  Report Type: Spontaneous
  Country: GB (occurrence: GB)
  Receive Date: 20251119
  Receipt Date: 20251119
  Transmission Date: 20260117
  Serious: Yes (Other)
  Sender: ABBVIE
  Company Number: None

PATIENT
  Age: 37 Year
  Sex: Female
  Weight: 66 kg

DRUGS (1)
  1. CITALOPRAM [Suspect]
     Active Substance: CITALOPRAM
     Indication: Depression
     Dosage: 20MG ONCE A DAY??CUMULATIVE DOSE: 20 MG
     Route: 048

REACTIONS (5)
  - Urethral pain [Recovered/Resolved]
  - Dysuria [Recovered/Resolved]
  - Bladder pain [Recovered/Resolved]
  - Chromaturia [Recovered/Resolved]
  - Body temperature increased [Recovered/Resolved]
